FAERS Safety Report 19612986 (Version 2)
Quarter: 2021Q3

REPORT INFORMATION
  Report Type: Spontaneous
  Country: US (occurrence: US)
  Receive Date: 20210727
  Receipt Date: 20210802
  Transmission Date: 20211014
  Serious: No
  Sender: FDA-Public Use
  Company Number: US-GLAXOSMITHKLINE-US2021158648

PATIENT
  Age: 72 Year
  Sex: Female

DRUGS (1)
  1. FLONASE SENSIMIST ALLERGY RELIEF [Suspect]
     Active Substance: FLUTICASONE FUROATE
     Indication: HYPERSENSITIVITY
     Dosage: UNK
     Dates: start: 20210721

REACTIONS (7)
  - Wrong technique in device usage process [Unknown]
  - Swelling face [Recovered/Resolved]
  - Dizziness [Unknown]
  - Drug hypersensitivity [Unknown]
  - Skin laceration [Recovering/Resolving]
  - Exposure via skin contact [Unknown]
  - Product complaint [Unknown]
